FAERS Safety Report 7782430-3 (Version None)
Quarter: 2011Q3

REPORT INFORMATION
  Report Type: 
  Country: None (occurrence: None)
  Receive Date: 20110928
  Receipt Date: 20110918
  Transmission Date: 20111222
  Serious: Yes (Other)
  Sender: FDA-Public Use
  Company Number: US-AMGEN-USASP2011048137

PATIENT
  Sex: Male

DRUGS (4)
  1. CORTICOSTEROIDS [Concomitant]
     Dosage: UNK
  2. HUMIRA [Concomitant]
  3. ENBREL [Suspect]
     Indication: RHEUMATOID ARTHRITIS
     Dosage: 50 MG, QWK
     Dates: start: 20060801
  4. REMICADE [Concomitant]
     Dosage: UNK

REACTIONS (8)
  - BLOOD GLUCOSE ABNORMAL [None]
  - PHARYNGEAL OEDEMA [None]
  - OEDEMA PERIPHERAL [None]
  - PALPITATIONS [None]
  - HYPERSENSITIVITY [None]
  - ARTHRALGIA [None]
  - MYALGIA [None]
  - PAIN [None]
